FAERS Safety Report 22620781 (Version 1)
Quarter: 2023Q2

REPORT INFORMATION
  Report Type: Spontaneous
  Country: US (occurrence: US)
  Receive Date: 20230620
  Receipt Date: 20230620
  Transmission Date: 20230721
  Serious: Yes (Life-Threatening, Hospitalization, Other)
  Sender: FDA-Public Use
  Company Number: US-PFIZER INC-PV202300105376

PATIENT
  Sex: Female
  Weight: 2.77 kg

DRUGS (2)
  1. PENICILLIN G POTASSIUM [Suspect]
     Active Substance: PENICILLIN G POTASSIUM
     Indication: Congenital syphilis
     Dosage: 50000 IU/KG, 2X/DAY (EVERY 12 H FOR 7 DAYS)
     Route: 042
  2. PENICILLIN G POTASSIUM [Suspect]
     Active Substance: PENICILLIN G POTASSIUM
     Dosage: 50000 IU/KG, 3X/DAY (EVERY 8 H FOR 3 DAYS)
     Route: 042

REACTIONS (1)
  - Necrotising enterocolitis neonatal [Recovered/Resolved]
